FAERS Safety Report 9749295 (Version 1)
Quarter: 2013Q4

REPORT INFORMATION
  Report Type: Spontaneous
  Country: US (occurrence: US)
  Receive Date: 20131212
  Receipt Date: 20131212
  Transmission Date: 20140711
  Serious: No
  Sender: FDA-Public Use
  Company Number: US-TEVA-393615USA

PATIENT
  Age: 24 Year
  Sex: Female

DRUGS (3)
  1. PARAGARD 380A [Suspect]
     Indication: CONTRACEPTION
     Route: 015
     Dates: start: 20130104, end: 20130318
  2. ZOLOFT [Concomitant]
     Indication: BIPOLAR DISORDER
  3. RITALIN [Concomitant]
     Indication: ATTENTION DEFICIT/HYPERACTIVITY DISORDER

REACTIONS (2)
  - Metrorrhagia [Not Recovered/Not Resolved]
  - Device expulsion [Recovered/Resolved]
